FAERS Safety Report 7771985-0 (Version None)
Quarter: 2011Q3

REPORT INFORMATION
  Report Type: 
  Country: None (occurrence: None)
  Receive Date: 20110922
  Receipt Date: 20110526
  Transmission Date: 20111222
  Serious: Yes (Hospitalization)
  Sender: FDA-Public Use
  Company Number: US-ASTRAZENECA-2011SE32325

PATIENT
  Age: 43 Year
  Sex: Female

DRUGS (4)
  1. SEROQUEL [Suspect]
     Indication: SCHIZOPHRENIA
     Route: 048
     Dates: start: 20070101
  2. XYPREXA [Concomitant]
  3. CLONAZEPAM [Concomitant]
  4. SEROQUEL [Suspect]
     Dosage: 20 TABLETS OF 400 MG
     Route: 048

REACTIONS (2)
  - HALLUCINATION, AUDITORY [None]
  - OVERDOSE [None]
